FAERS Safety Report 15644677 (Version 2)
Quarter: 2019Q1

REPORT INFORMATION
  Report Type: Spontaneous
  Country: US (occurrence: US)
  Receive Date: 20181121
  Receipt Date: 20190118
  Transmission Date: 20190417
  Serious: Yes (Other)
  Sender: FDA-Public Use
  Company Number: US-ASTRAZENECA-2018SF53116

PATIENT
  Age: 68 Year
  Sex: Female

DRUGS (7)
  1. AFINITOR [Concomitant]
     Active Substance: EVEROLIMUS
  2. ACLIMAFEN [Concomitant]
  3. ARIMIDEX [Suspect]
     Active Substance: ANASTROZOLE
     Indication: BREAST CANCER FEMALE
     Dosage: 10.0MG UNKNOWN
     Route: 048
     Dates: start: 201209
  4. IBRANCE [Suspect]
     Active Substance: PALBOCICLIB
     Indication: BREAST CANCER STAGE III
     Dosage: 125.0MG UNKNOWN
     Route: 048
  5. FASLODEX [Suspect]
     Active Substance: FULVESTRANT
     Indication: BREAST CANCER STAGE III
     Route: 030
     Dates: start: 201801
  6. FASLODEX [Suspect]
     Active Substance: FULVESTRANT
     Indication: BREAST CANCER STAGE III
     Route: 030
  7. ARIMIDEX [Suspect]
     Active Substance: ANASTROZOLE
     Indication: METASTATIC LYMPHOMA
     Dosage: 10.0MG UNKNOWN
     Route: 048
     Dates: start: 201209

REACTIONS (7)
  - Alopecia [Not Recovered/Not Resolved]
  - White blood cell count decreased [Unknown]
  - Lacrimation increased [Unknown]
  - Breast cancer recurrent [Unknown]
  - Malignant neoplasm progression [Unknown]
  - Lymphoma [Unknown]
  - Vision blurred [Unknown]
